FAERS Safety Report 23361227 (Version 1)
Quarter: 2024Q1

REPORT INFORMATION
  Report Type: Spontaneous
  Country: DE (occurrence: DE)
  Receive Date: 20240103
  Receipt Date: 20240103
  Transmission Date: 20240410
  Serious: Yes (Other)
  Sender: FDA-Public Use
  Company Number: DE-002147023-NVSC2023DE219757

PATIENT
  Sex: Female

DRUGS (6)
  1. TAFINLAR [Suspect]
     Active Substance: DABRAFENIB MESYLATE
     Indication: Product used for unknown indication
     Dosage: 75 MG, BID
     Route: 065
     Dates: start: 2019
  2. TAFINLAR [Suspect]
     Active Substance: DABRAFENIB MESYLATE
     Dosage: 75 MG, BID
     Route: 065
     Dates: end: 2023
  3. TAFINLAR [Suspect]
     Active Substance: DABRAFENIB MESYLATE
     Dosage: 75 MG, BID
     Route: 065
     Dates: start: 2023
  4. MEKINIST [Suspect]
     Active Substance: TRAMETINIB DIMETHYL SULFOXIDE
     Indication: Product used for unknown indication
     Dosage: 2 DOSAGE FORM, QD (0.5 MG)
     Route: 065
     Dates: start: 2019
  5. MEKINIST [Suspect]
     Active Substance: TRAMETINIB DIMETHYL SULFOXIDE
     Dosage: 2 DOSAGE FORM, QD (0.5 MG)
     Route: 065
     Dates: end: 2023
  6. MEKINIST [Suspect]
     Active Substance: TRAMETINIB DIMETHYL SULFOXIDE
     Dosage: 2 DOSAGE FORM, QD (0.5 MG)
     Route: 065
     Dates: start: 2023

REACTIONS (11)
  - Pancytopenia [Unknown]
  - Cystitis noninfective [Not Recovered/Not Resolved]
  - Vaginal infection [Not Recovered/Not Resolved]
  - Vulvovaginal dryness [Not Recovered/Not Resolved]
  - Nasal dryness [Not Recovered/Not Resolved]
  - Granulocyte count decreased [Unknown]
  - Headache [Unknown]
  - Mucosal disorder [Not Recovered/Not Resolved]
  - Eye disorder [Not Recovered/Not Resolved]
  - Gastrointestinal mucosal disorder [Not Recovered/Not Resolved]
  - Bladder disorder [Not Recovered/Not Resolved]

NARRATIVE: CASE EVENT DATE: 20230101
